FAERS Safety Report 11684063 (Version 1)
Quarter: 2015Q4

REPORT INFORMATION
  Report Type: Report from Study
  Country: US (occurrence: US)
  Receive Date: 20151029
  Receipt Date: 20151029
  Transmission Date: 20160304
  Serious: Yes (Other)
  Sender: FDA-Public Use
  Company Number: US-JNJFOC-20151022464

PATIENT
  Sex: Male

DRUGS (17)
  1. AZITHROMYCIN [Concomitant]
     Active Substance: AZITHROMYCIN ANHYDROUS
  2. DEXTROMETHORPHAN [Concomitant]
     Active Substance: DEXTROMETHORPHAN
  3. IMBRUVICA [Suspect]
     Active Substance: IBRUTINIB
     Indication: CHRONIC LYMPHOCYTIC LEUKAEMIA
     Route: 048
     Dates: start: 20140715
  4. MULTIVITAMINS [Concomitant]
     Active Substance: VITAMINS
  5. IVIGLOB EX [Concomitant]
     Active Substance: HUMAN IMMUNOGLOBULIN G
  6. GUAIFENESIN. [Concomitant]
     Active Substance: GUAIFENESIN
  7. PHENYLEPHRINE [Concomitant]
     Active Substance: PHENYLEPHRINE\PHENYLEPHRINE HYDROCHLORIDE
  8. LEVOTHYROXINE. [Concomitant]
     Active Substance: LEVOTHYROXINE
  9. PRAVASTATIN [Concomitant]
     Active Substance: PRAVASTATIN\PRAVASTATIN SODIUM
  10. ALLOPURINOL. [Concomitant]
     Active Substance: ALLOPURINOL
  11. ACETAMINOPHEN, DIPHENHYDRAMINE HYDROCHLORIDE [Concomitant]
     Active Substance: ACETAMINOPHEN\DIPHENHYDRAMINE HYDROCHLORIDE
  12. CETIRIZINE [Concomitant]
     Active Substance: CETIRIZINE HYDROCHLORIDE
  13. VITAMIN D [Concomitant]
     Active Substance: CHOLECALCIFEROL
  14. ACETAMINOPHEN. [Concomitant]
     Active Substance: ACETAMINOPHEN
  15. IMBRUVICA [Suspect]
     Active Substance: IBRUTINIB
     Indication: CHRONIC LYMPHOCYTIC LEUKAEMIA
     Route: 048
  16. ASPIRIN. [Concomitant]
     Active Substance: ASPIRIN
  17. PHENYLEPHRINE [Concomitant]
     Active Substance: PHENYLEPHRINE\PHENYLEPHRINE HYDROCHLORIDE

REACTIONS (1)
  - Bone disorder [Unknown]
